FAERS Safety Report 5975552-0 (Version None)
Quarter: 2008Q4

REPORT INFORMATION
  Report Type: 
  Country: None (occurrence: None)
  Receive Date: 20081202
  Receipt Date: 20081022
  Transmission Date: 20090506
  Serious: No
  Sender: FDA-Public Use
  Company Number: A0747963A

PATIENT
  Age: 7 Month
  Sex: Male
  Weight: 9.8 kg

DRUGS (3)
  1. AMOXICILLIN + CLAVULANATE POTASSIUM [Suspect]
     Indication: EAR INFECTION
     Dosage: 3ML TWICE PER DAY
     Route: 048
     Dates: start: 20080911
  2. RANITIDINE [Concomitant]
  3. PREDNISOLONE [Concomitant]
     Dosage: 3ML THREE TIMES PER DAY
     Dates: start: 20080912

REACTIONS (4)
  - ABDOMINAL PAIN UPPER [None]
  - DRUG ADMINISTRATION ERROR [None]
  - PRODUCT QUALITY ISSUE [None]
  - VOMITING [None]
